FAERS Safety Report 15920802 (Version 3)
Quarter: 2019Q3

REPORT INFORMATION
  Report Type: Report from Study
  Country: US (occurrence: US)
  Receive Date: 20190205
  Receipt Date: 20190726
  Transmission Date: 20191004
  Serious: No
  Sender: FDA-Public Use
  Company Number: PHEH2019US005119

PATIENT
  Age: 29 Year
  Sex: Female

DRUGS (2)
  1. GILENYA [Suspect]
     Active Substance: FINGOLIMOD HYDROCHLORIDE
     Indication: RELAPSING MULTIPLE SCLEROSIS
     Dosage: 0.5 MG, QD
     Route: 048
     Dates: start: 20180514
  2. GILENYA [Suspect]
     Active Substance: FINGOLIMOD HYDROCHLORIDE
     Indication: MULTIPLE SCLEROSIS
     Dosage: 0.5 MG, QD
     Route: 048
     Dates: start: 20190718

REACTIONS (17)
  - Vision blurred [Unknown]
  - Influenza like illness [Unknown]
  - Balance disorder [Unknown]
  - Cold sweat [Unknown]
  - Fatigue [Unknown]
  - Hypersensitivity [Unknown]
  - Rash [Unknown]
  - Pain [Unknown]
  - Dry mouth [Unknown]
  - Headache [Unknown]
  - Sinusitis [Unknown]
  - Paranasal sinus discomfort [Unknown]
  - Chills [Unknown]
  - Eye swelling [Unknown]
  - Ocular hyperaemia [Unknown]
  - Depression [Unknown]
  - Sinus headache [Unknown]

NARRATIVE: CASE EVENT DATE: 20190127
